FAERS Safety Report 6964616-0 (Version None)
Quarter: 2010Q3

REPORT INFORMATION
  Report Type: 
  Country: None (occurrence: None)
  Receive Date: 20100903
  Receipt Date: 20100827
  Transmission Date: 20110219
  Serious: Yes (Other)
  Sender: FDA-Public Use
  Company Number: US-JNJFOC-20100606247

PATIENT
  Sex: Female
  Weight: 4.99 kg

DRUGS (5)
  1. CONCENTRATED TYLENOL INFANT DROPS [Suspect]
     Route: 048
  2. CONCENTRATED TYLENOL INFANT DROPS [Suspect]
     Indication: PYREXIA
     Dosage: ONE DOSE
     Route: 048
  3. ROTATEQ [Concomitant]
     Indication: IMMUNISATION
  4. PNEUMOVAX 23 [Concomitant]
     Indication: IMMUNISATION
  5. HEPATITIS B VACCINE [Concomitant]
     Indication: IMMUNISATION

REACTIONS (2)
  - CONVULSION [None]
  - PRODUCT QUALITY ISSUE [None]
